FAERS Safety Report 18170020 (Version 1)
Quarter: 2020Q3

REPORT INFORMATION
  Report Type: Spontaneous
  Country: US (occurrence: US)
  Receive Date: 20200818
  Receipt Date: 20200818
  Transmission Date: 20201103
  Serious: No
  Sender: FDA-Public Use
  Company Number: None

PATIENT
  Age: 67 Year
  Sex: Male
  Weight: 71.3 kg

DRUGS (12)
  1. REMDESIVIR. [Suspect]
     Active Substance: REMDESIVIR
     Indication: COVID-19
     Dates: start: 20200624, end: 20200628
  2. ASCORBIC ACID. [Concomitant]
     Active Substance: ASCORBIC ACID
  3. LANTUS [Concomitant]
     Active Substance: INSULIN GLARGINE
  4. THIAMINE. [Concomitant]
     Active Substance: THIAMINE
  5. CEFTRIAXONE. [Concomitant]
     Active Substance: CEFTRIAXONE
  6. DEXAMETHASONE. [Concomitant]
     Active Substance: DEXAMETHASONE
  7. MULTIVITAMIN WITH MINERALS [Concomitant]
     Active Substance: MINERALS\VITAMINS
  8. PANTOPRAZOLE [Concomitant]
     Active Substance: PANTOPRAZOLE
  9. HEPARIN [Concomitant]
     Active Substance: HEPARIN SODIUM
  10. AZITHROMYCIN ANHYDROUS. [Concomitant]
     Active Substance: AZITHROMYCIN ANHYDROUS
  11. TOCILIZUMAB. [Concomitant]
     Active Substance: TOCILIZUMAB
  12. ZINC SULFATE. [Concomitant]
     Active Substance: ZINC SULFATE

REACTIONS (3)
  - Heart rate decreased [None]
  - Atrial fibrillation [None]
  - Bradycardia [None]

NARRATIVE: CASE EVENT DATE: 20200626
